FAERS Safety Report 6966796-X (Version None)
Quarter: 2010Q3

REPORT INFORMATION
  Report Type: 
  Country: None (occurrence: None)
  Receive Date: 20100906
  Receipt Date: 20100823
  Transmission Date: 20110219
  Serious: Yes (Other)
  Sender: FDA-Public Use
  Company Number: PHHY2010NZ56440

PATIENT
  Sex: Female

DRUGS (1)
  1. GLEEVEC [Suspect]
     Indication: CHRONIC MYELOID LEUKAEMIA
     Dosage: 600 MG
     Route: 048
     Dates: start: 20100701

REACTIONS (6)
  - COUGH [None]
  - DIARRHOEA [None]
  - DRUG DOSE OMISSION [None]
  - NAUSEA [None]
  - UTERINE HAEMORRHAGE [None]
  - VOMITING [None]
